FAERS Safety Report 13268940 (Version 9)
Quarter: 2017Q3

REPORT INFORMATION
  Report Type: Report from Study
  Country: US (occurrence: US)
  Receive Date: 20170224
  Receipt Date: 20170731
  Transmission Date: 20171127
  Serious: Yes (Death, Life-Threatening, Hospitalization)
  Sender: FDA-Public Use
  Company Number: US-LUNDBECK-DKLU2026289

PATIENT
  Age: 72 Year
  Sex: Male

DRUGS (19)
  1. DROXIDOPA [Suspect]
     Active Substance: DROXIDOPA
     Route: 048
     Dates: start: 20170202, end: 20170205
  2. MEMANTINE HCL ER [Concomitant]
     Indication: DEMENTIA
     Route: 048
     Dates: start: 20120308
  3. FLUDROCORTISONE ACETATE. [Concomitant]
     Active Substance: FLUDROCORTISONE ACETATE
     Indication: ORTHOSTATIC HYPOTENSION
     Route: 048
     Dates: start: 20161017
  4. QUETIAPINE FUMARATE. [Concomitant]
     Active Substance: QUETIAPINE FUMARATE
     Route: 048
  5. DROXIDOPA [Suspect]
     Active Substance: DROXIDOPA
     Route: 048
     Dates: start: 20170206, end: 20170206
  6. QUETIAPINE FUMARATE. [Concomitant]
     Active Substance: QUETIAPINE FUMARATE
     Indication: SLEEP DISORDER THERAPY
     Route: 048
     Dates: start: 20151228
  7. DONEPEZIL HCL [Concomitant]
     Active Substance: DONEPEZIL HYDROCHLORIDE
     Route: 048
     Dates: start: 20150924
  8. COENZYME Q10 [Concomitant]
     Active Substance: UBIDECARENONE
     Indication: VITAMIN SUPPLEMENTATION
     Route: 048
     Dates: start: 20140506
  9. MEMANTINE HCL ER [Concomitant]
     Route: 048
     Dates: start: 20161106
  10. CYANOCOBALAMIN IJ [Concomitant]
     Indication: VITAMIN SUPPLEMENTATION
     Route: 058
     Dates: start: 20120130
  11. DROXIDOPA [Suspect]
     Active Substance: DROXIDOPA
     Route: 048
     Dates: start: 20170131, end: 20170201
  12. MEMANTINE HCL ER [Concomitant]
     Route: 048
     Dates: start: 20160406
  13. MEMANTINE HCL ER [Concomitant]
     Route: 048
     Dates: start: 201604
  14. MIDODRINE [Concomitant]
     Active Substance: MIDODRINE
     Indication: ORTHOSTATIC HYPOTENSION
     Route: 048
     Dates: start: 20160909, end: 20170123
  15. ATORVASTATIN CALCIUM. [Concomitant]
     Active Substance: ATORVASTATIN CALCIUM
     Indication: PROPHYLAXIS
     Route: 048
     Dates: start: 20120209
  16. CLOPIDOGREL BISULFATE. [Concomitant]
     Active Substance: CLOPIDOGREL BISULFATE
     Indication: PROPHYLAXIS
     Route: 048
     Dates: start: 20120130
  17. DROXIDOPA [Suspect]
     Active Substance: DROXIDOPA
     Indication: PARKINSON^S DISEASE
     Route: 048
     Dates: start: 20170126, end: 20170130
  18. OMEGA-3 FATTY ACIDS [Concomitant]
     Active Substance: OMEGA-3 FATTY ACIDS
     Indication: VITAMIN SUPPLEMENTATION
     Route: 048
     Dates: start: 20160219
  19. DONEPEZIL HCL [Concomitant]
     Active Substance: DONEPEZIL HYDROCHLORIDE
     Indication: DEMENTIA
     Route: 048
     Dates: start: 20141120

REACTIONS (2)
  - Subdural haematoma [Fatal]
  - Cerebral haemorrhage [Fatal]

NARRATIVE: CASE EVENT DATE: 20170207
